FAERS Safety Report 8494128 (Version 2)
Quarter: 2013Q2

REPORT INFORMATION
  Report Type: Spontaneous
  Country: US (occurrence: None)
  Receive Date: 20120314
  Receipt Date: 20130529
  Transmission Date: 20140414
  Serious: Yes (Hospitalization, Other)
  Sender: FDA-Public Use
  Company Number: 2011028415

PATIENT
  Age: 49 Year
  Sex: Female
  Weight: 62.6 kg

DRUGS (17)
  1. ZEMAIRA [Suspect]
     Indication: ALPHA-1 ANTI-TRYPSIN DEFICIENCY
     Dosage: 60 MG/KG 1X/7 DAYS INTRAVENOUS (NOT OTHERWISE SPECIFIED)
     Route: 042
     Dates: start: 200911
  2. ZYBAN [Concomitant]
  3. DOXEPIN [Concomitant]
  4. LISINOPRIL [Concomitant]
  5. ESTRADIOL [Concomitant]
  6. PREDNISONE [Concomitant]
  7. OXYGEN [Concomitant]
  8. ADVAIR 250 (SERETIDE) [Concomitant]
  9. SPIRIVA [Concomitant]
  10. ALBUTEROL (SALBUTAMOL) [Concomitant]
  11. XOPENEX HFA (LEVOSALBUTAMOL) [Concomitant]
  12. SODIUM CHLORIDE [Concomitant]
  13. PENICILLIN (BENZYLPENICILLIN SODIUM) [Concomitant]
  14. DIPHENHYDRAMINE (DIPHENHYDRAMINE) [Concomitant]
  15. EPI-PEN (EPINEPHRINE HYDROCHLORIDE) [Concomitant]
  16. LMX (LIDOCAINE) [Concomitant]
  17. AVELOX (MOXIFLOXACIN HYDROCHLORIDE) [Concomitant]

REACTIONS (5)
  - UPPER RESPIRATORY TRACT INFECTION [None]
  - RESPIRATORY TRACT INFECTION [None]
  - FATIGUE [None]
  - SOMNOLENCE [None]
  - PULMONARY ARTERIAL HYPERTENSION [None]
